FAERS Safety Report 20224855 (Version 2)
Quarter: 2022Q1

REPORT INFORMATION
  Report Type: Spontaneous
  Country: US (occurrence: US)
  Receive Date: 20211223
  Receipt Date: 20220113
  Transmission Date: 20220423
  Serious: Yes (Hospitalization)
  Sender: FDA-Public Use
  Company Number: US-TEVA-2021-US-1989702

PATIENT
  Age: 69 Year
  Sex: Female

DRUGS (3)
  1. ALLOPURINOL [Interacting]
     Active Substance: ALLOPURINOL
     Indication: Nephrolithiasis
     Dosage: 100 MILLIGRAM DAILY; STARTED 3 MONTHS BEFORE PRESENTATION
     Route: 065
  2. AZATHIOPRINE [Interacting]
     Active Substance: AZATHIOPRINE
     Indication: Colitis ulcerative
     Dosage: 100 MILLIGRAM DAILY;
     Route: 065
  3. AZATHIOPRINE [Interacting]
     Active Substance: AZATHIOPRINE
     Indication: Colitis ulcerative
     Dosage: 150 MILLIGRAM DAILY; FOUR MONTHS PRIOR TO PRESENTATION , THE DOSE HAD BEEN INCREASED FROM 100MG TO 1
     Route: 065

REACTIONS (3)
  - Drug interaction [Recovering/Resolving]
  - Myelosuppression [Recovering/Resolving]
  - Anaemia [Recovering/Resolving]
